FAERS Safety Report 5023095-3 (Version None)
Quarter: 2006Q2

REPORT INFORMATION
  Report Type: 
  Country: None (occurrence: None)
  Receive Date: 20060428
  Receipt Date: 20060124
  Transmission Date: 20061013
  Serious: Yes (Other)
  Sender: FDA-Public Use
  Company Number: 2006011788

PATIENT
  Age: 2 Year
  Sex: Female
  Weight: 10.8863 kg

DRUGS (1)
  1. BENADRYL [Suspect]
     Indication: ACCIDENTAL EXPOSURE
     Dosage: UNKNOWN AMOUNT ONCE, ORAL
     Route: 048
     Dates: start: 20060124, end: 20060124

REACTIONS (3)
  - ACCIDENTAL OVERDOSE [None]
  - MEDICATION ERROR [None]
  - SOMNOLENCE [None]
